FAERS Safety Report 5924061-3 (Version None)
Quarter: 2008Q4

REPORT INFORMATION
  Report Type: 
  Country: None (occurrence: None)
  Receive Date: 20081020
  Receipt Date: 20081008
  Transmission Date: 20090506
  Serious: Yes (Death)
  Sender: FDA-Public Use
  Company Number: US-SANOFI-SYNTHELABO-A03200803916

PATIENT
  Age: 50 Year
  Sex: Female

DRUGS (1)
  1. AMBIEN [Suspect]
     Indication: DRUG USE FOR UNKNOWN INDICATION
     Dosage: TOOK 75 TABLETS
     Route: 048
     Dates: start: 20080901

REACTIONS (3)
  - COMPLETED SUICIDE [None]
  - GUN SHOT WOUND [None]
  - INTENTIONAL OVERDOSE [None]
